FAERS Safety Report 4279944-X (Version None)
Quarter: 2004Q1

REPORT INFORMATION
  Report Type: 
  Country: None (occurrence: None)
  Receive Date: 20040127
  Receipt Date: 20040127
  Transmission Date: 20041129
  Serious: Yes (Other)
  Sender: FDA-Public Use
  Company Number: None

PATIENT
  Age: 70 Year
  Sex: Female
  Weight: 89.8122 kg

DRUGS (8)
  1. REMICADE [Suspect]
     Dosage: 300MG  Q 8 WEEKS   INTRAVENOUS
     Route: 042
     Dates: start: 20000101, end: 20031028
  2. METHOTREXATE [Suspect]
     Dosage: 12.5 MG Q WEEK ORAL
     Route: 048
     Dates: start: 20000101, end: 20031230
  3. PRINIVIL [Concomitant]
  4. HYDROCHLOROTHIAZIDE [Concomitant]
  5. FOSAMAX [Concomitant]
  6. PROTONIX [Concomitant]
  7. CELEBREX [Concomitant]
  8. EVISTA [Concomitant]

REACTIONS (1)
  - DIFFUSE LARGE B-CELL LYMPHOMA [None]
